FAERS Safety Report 4570523-3 (Version None)
Quarter: 2005Q1

REPORT INFORMATION
  Report Type: 
  Country: None (occurrence: None)
  Receive Date: 20050204
  Receipt Date: 20050127
  Transmission Date: 20050727
  Serious: Yes (Other)
  Sender: FDA-Public Use
  Company Number: PHEH2005US01383

PATIENT
  Age: 52 Year
  Sex: Male

DRUGS (3)
  1. TRICOR [Concomitant]
  2. PROPECIA [Suspect]
  3. LOTENSIN HCT [Suspect]
     Dosage: 20 MG BENAZ/12.5 MG HCT QD
     Dates: start: 20040712, end: 20041201

REACTIONS (3)
  - BLINDNESS [None]
  - INTRAOCULAR PRESSURE INCREASED [None]
  - VISION BLURRED [None]
